FAERS Safety Report 6340333-5 (Version None)
Quarter: 2009Q3

REPORT INFORMATION
  Report Type: 
  Country: None (occurrence: None)
  Receive Date: 20090904
  Receipt Date: 20090828
  Transmission Date: 20100115
  Serious: Yes (Other)
  Sender: FDA-Public Use
  Company Number: US-BIOGENIDEC-2009BI018330

PATIENT
  Age: 38 Year
  Sex: Male

DRUGS (1)
  1. TYSABRI [Suspect]
     Indication: MULTIPLE SCLEROSIS
     Route: 042
     Dates: start: 20070717, end: 20090429

REACTIONS (4)
  - BLOOD COUNT ABNORMAL [None]
  - CD4 LYMPHOCYTES DECREASED [None]
  - CD4 LYMPHOCYTES INCREASED [None]
  - LEUKAEMIA [None]
